FAERS Safety Report 7972168-1 (Version None)
Quarter: 2011Q4

REPORT INFORMATION
  Report Type: 
  Country: None (occurrence: None)
  Receive Date: 20111212
  Receipt Date: 20111205
  Transmission Date: 20120403
  Serious: Yes (Hospitalization)
  Sender: FDA-Public Use
  Company Number: US-AMGEN-USASP2011064548

PATIENT
  Age: 63 Year
  Sex: Male

DRUGS (1)
  1. ENBREL [Suspect]
     Indication: PSORIASIS
     Dosage: 50 MG, QWK
     Dates: start: 20110228

REACTIONS (5)
  - ANGINA PECTORIS [None]
  - SWELLING FACE [None]
  - MUSCULOSKELETAL STIFFNESS [None]
  - DYSPNOEA [None]
  - JOINT STIFFNESS [None]
